FAERS Safety Report 6606630-0 (Version None)
Quarter: 2010Q1

REPORT INFORMATION
  Report Type: 
  Country: None (occurrence: None)
  Receive Date: 20100226
  Receipt Date: 20100216
  Transmission Date: 20100710
  Serious: Yes (Hospitalization)
  Sender: FDA-Public Use
  Company Number: JP-ABBOTT-10P-087-0628918-00

PATIENT
  Age: 88 Year
  Sex: Male

DRUGS (7)
  1. LEUPROLIDE ACETATE [Suspect]
     Indication: PROSTATE CANCER STAGE III
     Route: 058
     Dates: start: 20070209
  2. BIASETYL [Suspect]
     Indication: PROSTATE CANCER STAGE III
     Route: 048
     Dates: start: 20081209, end: 20090204
  3. BICALUTAMIDE [Concomitant]
     Indication: PROSTATE CANCER STAGE III
     Route: 048
     Dates: end: 20080916
  4. UFT [Concomitant]
     Indication: PROSTATE CANCER STAGE III
     Route: 048
     Dates: start: 20060917, end: 20081208
  5. HARNAL D [Concomitant]
     Indication: BENIGN PROSTATIC HYPERPLASIA
     Route: 048
  6. ULGUT [Concomitant]
     Indication: PROPHYLAXIS
     Route: 048
     Dates: start: 20080917, end: 20081209
  7. ASPIRIN [Concomitant]
     Indication: PROPHYLAXIS
     Route: 048
     Dates: start: 20081209, end: 20090305

REACTIONS (2)
  - HEPATIC FUNCTION ABNORMAL [None]
  - PLEURAL EFFUSION [None]
